FAERS Safety Report 8480190-4 (Version None)
Quarter: 2012Q2

REPORT INFORMATION
  Report Type: 
  Country: None (occurrence: None)
  Receive Date: 20120629
  Receipt Date: 20120625
  Transmission Date: 20120825
  Serious: Yes (Hospitalization)
  Sender: FDA-Public Use
  Company Number: US-MERCK-1206USA04552

PATIENT
  Age: 45 Month
  Sex: Male

DRUGS (1)
  1. SINGULAIR [Suspect]
     Indication: ASTHMA
     Route: 048
     Dates: start: 20120101, end: 20120101

REACTIONS (5)
  - JOINT SWELLING [None]
  - BLOOD URINE PRESENT [None]
  - HENOCH-SCHONLEIN PURPURA [None]
  - ABDOMINAL PAIN [None]
  - PROTEIN URINE PRESENT [None]
